FAERS Safety Report 15509422 (Version 1)
Quarter: 2018Q4

REPORT INFORMATION
  Report Type: Spontaneous
  Country: AU (occurrence: AU)
  Receive Date: 20181017
  Receipt Date: 20181017
  Transmission Date: 20190205
  Serious: No
  Sender: FDA-Public Use
  Company Number: None

PATIENT
  Age: 22 Year
  Sex: Female
  Weight: 48 kg

DRUGS (3)
  1. CYMBALTA [Suspect]
     Active Substance: DULOXETINE HYDROCHLORIDE
     Indication: ANXIETY
     Dosage: ?          QUANTITY:1 CAPSULE(S);?
     Route: 048
     Dates: start: 20171001, end: 20181014
  2. CYMBALTA [Suspect]
     Active Substance: DULOXETINE HYDROCHLORIDE
     Indication: DEPRESSION
     Dosage: ?          QUANTITY:1 CAPSULE(S);?
     Route: 048
     Dates: start: 20171001, end: 20181014
  3. IMREST ZOPICLONE [Concomitant]

REACTIONS (12)
  - Depression [None]
  - Anxiety [None]
  - Anger [None]
  - Decreased appetite [None]
  - Withdrawal syndrome [None]
  - Affect lability [None]
  - Paraesthesia [None]
  - Insomnia [None]
  - Nausea [None]
  - Chest discomfort [None]
  - Impaired work ability [None]
  - Loss of libido [None]

NARRATIVE: CASE EVENT DATE: 20181017
